FAERS Safety Report 24951587 (Version 1)
Quarter: 2025Q1

REPORT INFORMATION
  Report Type: Spontaneous
  Country: US (occurrence: US)
  Receive Date: 20250210
  Receipt Date: 20250210
  Transmission Date: 20250408
  Serious: No
  Sender: INTRA-CELLULAR THERAPIES
  Company Number: US-INTRA-CELLULAR THERAPIES, INC.-2024ICT01548

PATIENT
  Age: 28 Year
  Sex: Female
  Weight: 98.413 kg

DRUGS (6)
  1. CAPLYTA [Suspect]
     Active Substance: LUMATEPERONE
  2. RITALIN [Concomitant]
     Active Substance: METHYLPHENIDATE HYDROCHLORIDE
  3. LAMICTAL [Concomitant]
     Active Substance: LAMOTRIGINE
  4. ZOLOFT [Concomitant]
     Active Substance: SERTRALINE HYDROCHLORIDE
  5. CLONIDINE [Concomitant]
     Active Substance: CLONIDINE
  6. MELATONIN [Concomitant]
     Active Substance: MELATONIN

REACTIONS (2)
  - Hypersomnia [Recovered/Resolved]
  - Disturbance in attention [Recovering/Resolving]
